FAERS Safety Report 24147103 (Version 2)
Quarter: 2024Q3

REPORT INFORMATION
  Report Type: Spontaneous
  Country: US (occurrence: US)
  Receive Date: 20240729
  Receipt Date: 20240913
  Transmission Date: 20241016
  Serious: Yes (Death, Hospitalization)
  Sender: AMGEN
  Company Number: US-AMGEN-USASP2024146907

PATIENT
  Age: 32 Year
  Sex: Male

DRUGS (6)
  1. TAVNEOS [Suspect]
     Active Substance: AVACOPAN
     Indication: Granulomatosis with polyangiitis
     Dosage: UNK
     Route: 065
     Dates: start: 20240501, end: 20240701
  2. TAVNEOS [Suspect]
     Active Substance: AVACOPAN
     Indication: Ischaemia
  3. TAVNEOS [Suspect]
     Active Substance: AVACOPAN
     Indication: Malaise
  4. RITUXIMAB [Suspect]
     Active Substance: RITUXIMAB
     Indication: Granulomatosis with polyangiitis
     Dosage: UNK, HIGH DOSE
     Route: 065
  5. RITUXIMAB [Suspect]
     Active Substance: RITUXIMAB
     Indication: Ischaemia
  6. RITUXIMAB [Suspect]
     Active Substance: RITUXIMAB
     Indication: Malaise

REACTIONS (5)
  - Septic shock [Fatal]
  - Pancreatitis necrotising [Fatal]
  - Peritonitis [Fatal]
  - Gastrointestinal candidiasis [Fatal]
  - Deep vein thrombosis [Fatal]

NARRATIVE: CASE EVENT DATE: 20240101
